FAERS Safety Report 7583008-7 (Version None)
Quarter: 2011Q2

REPORT INFORMATION
  Report Type: 
  Country: None (occurrence: None)
  Receive Date: 20110630
  Receipt Date: 20110624
  Transmission Date: 20111010
  Serious: Yes (Other)
  Sender: FDA-Public Use
  Company Number: US-JNJFOC-20110611651

PATIENT
  Sex: Female
  Weight: 63.5 kg

DRUGS (3)
  1. ALL OTHER THERAPEUTIC PRODUCT [Concomitant]
     Route: 065
  2. ELMIRON [Suspect]
     Route: 048
     Dates: start: 20110601
  3. ELMIRON [Suspect]
     Indication: BLADDER CYST
     Route: 048

REACTIONS (3)
  - DRUG INEFFECTIVE [None]
  - BLADDER OPERATION [None]
  - INTENTIONAL DRUG MISUSE [None]
